FAERS Safety Report 4298938-1 (Version None)
Quarter: 2004Q1

REPORT INFORMATION
  Report Type: 
  Country: None (occurrence: None)
  Receive Date: 20040217
  Receipt Date: 20040123
  Transmission Date: 20041129
  Serious: Yes (Hospitalization)
  Sender: FDA-Public Use
  Company Number: 6007044

PATIENT
  Age: 97 Year
  Sex: Female

DRUGS (3)
  1. LEVOTHYROXINE SODIUM [Suspect]
     Indication: HYPOTHYROIDISM
     Dosage: 1 DOSAGE ORAL
     Route: 048
  2. COZAAR [Suspect]
     Indication: HYPERTENSION
     Dosage: ORAL
     Route: 048
     Dates: end: 20030201
  3. MICARDIS [Suspect]
     Indication: HYPERTENSION
     Dosage: ORAL
     Route: 048
     Dates: start: 20030201, end: 20030917

REACTIONS (3)
  - DERMATITIS BULLOUS [None]
  - PEMPHIGOID [None]
  - TOXIC SKIN ERUPTION [None]
